FAERS Safety Report 12652778 (Version 1)
Quarter: 2016Q3

REPORT INFORMATION
  Report Type: Spontaneous
  Country: US (occurrence: US)
  Receive Date: 20160815
  Receipt Date: 20160815
  Transmission Date: 20161109
  Serious: Yes (Death, Hospitalization)
  Sender: FDA-Public Use
  Company Number: US-PFM-US-2016-2434

PATIENT
  Age: 16 Year
  Sex: Male

DRUGS (3)
  1. GEMCITABINE [Suspect]
     Active Substance: GEMCITABINE\GEMCITABINE HYDROCHLORIDE
     Indication: NEUROENDOCRINE CARCINOMA
     Dosage: UNK
     Route: 065
  2. VINORELBINE INN [Suspect]
     Active Substance: VINORELBINE TARTRATE
     Indication: NEUROENDOCRINE CARCINOMA
     Dosage: UNK
     Route: 065
  3. PACLITAXEL. [Suspect]
     Active Substance: PACLITAXEL
     Indication: NEUROENDOCRINE CARCINOMA
     Dosage: UNK
     Route: 065

REACTIONS (10)
  - Urine protein/creatinine ratio increased [Unknown]
  - Abdominal distension [Unknown]
  - Constipation [Unknown]
  - Myeloma cast nephropathy [Fatal]
  - Glycosuria [Unknown]
  - Abdominal pain [Unknown]
  - Off label use [Unknown]
  - Proteinuria [Unknown]
  - Nausea [Unknown]
  - Vomiting [Unknown]
